FAERS Safety Report 23306378 (Version 1)
Quarter: 2023Q4

REPORT INFORMATION
  Report Type: Spontaneous
  Country: CN (occurrence: CN)
  Receive Date: 20231218
  Receipt Date: 20231218
  Transmission Date: 20240109
  Serious: Yes (Hospitalization)
  Sender: FDA-Public Use
  Company Number: None

PATIENT
  Age: 72 Year
  Sex: Male

DRUGS (4)
  1. NOVORAPID [Suspect]
     Active Substance: INSULIN ASPART
     Indication: Hepatic cancer
     Dosage: 8IU,QD
     Route: 058
     Dates: start: 20231017
  2. PHOSPHOLIPID [Suspect]
     Active Substance: PHOSPHOLIPID
     Indication: Hepatic cancer
     Dosage: 465MG,QD
     Route: 042
     Dates: start: 20231017
  3. ENTECAVIR [Suspect]
     Active Substance: ENTECAVIR
     Indication: Hepatic cancer
     Dosage: 0.5MG,QD
     Route: 048
     Dates: start: 20231017
  4. CANAGLIFLOZIN [Concomitant]
     Active Substance: CANAGLIFLOZIN
     Indication: Blood glucose increased
     Dosage: UNK

REACTIONS (2)
  - White blood cell count decreased [Unknown]
  - Off label use [Unknown]

NARRATIVE: CASE EVENT DATE: 20231017
